FAERS Safety Report 6711143-1 (Version None)
Quarter: 2010Q2

REPORT INFORMATION
  Report Type: 
  Country: None (occurrence: None)
  Receive Date: 20100505
  Receipt Date: 20100426
  Transmission Date: 20101027
  Serious: No
  Sender: FDA-Public Use
  Company Number: US-B.I. PHARMACEUTICALS,INC./RIDGEFIELD-2010-BP-04754BP

PATIENT
  Sex: Female

DRUGS (1)
  1. SPIRIVA [Suspect]
     Route: 055
     Dates: start: 20091001

REACTIONS (5)
  - CHEST PAIN [None]
  - DRY MOUTH [None]
  - DRY THROAT [None]
  - DYSPEPSIA [None]
  - DYSPHONIA [None]
